FAERS Safety Report 7304819-9 (Version None)
Quarter: 2011Q1

REPORT INFORMATION
  Report Type: 
  Country: None (occurrence: None)
  Receive Date: 20110222
  Receipt Date: 20110209
  Transmission Date: 20110831
  Serious: No
  Sender: FDA-Public Use
  Company Number: US-PFIZER INC-US-WYE-H15232810

PATIENT
  Sex: Female
  Weight: 113 kg

DRUGS (7)
  1. PRISTIQ [Suspect]
     Indication: DEPRESSION
     Dosage: 50.0 MG, 1X/DAY
     Route: 065
  2. ZOLOFT [Suspect]
     Indication: DEPRESSION
  3. ASCORBIC ACID/CHONDROITIN SULFATE/GLUCOSAMINE SULFATE/MANGANESE [Concomitant]
  4. MULTI-VITAMINS [Concomitant]
  5. WELLBUTRIN [Concomitant]
  6. CALCIUM [Concomitant]
  7. FISH OIL, HYDROGENATED [Concomitant]

REACTIONS (9)
  - FEELING ABNORMAL [None]
  - CRYING [None]
  - DECREASED APPETITE [None]
  - UNEVALUABLE EVENT [None]
  - BLOOD PRESSURE SYSTOLIC INCREASED [None]
  - APATHY [None]
  - DRUG EFFECT DECREASED [None]
  - INCREASED APPETITE [None]
  - DISTURBANCE IN ATTENTION [None]
